FAERS Safety Report 5396816-8 (Version None)
Quarter: 2007Q3

REPORT INFORMATION
  Report Type: 
  Country: None (occurrence: None)
  Receive Date: 20070725
  Receipt Date: 20060829
  Transmission Date: 20080115
  Serious: No
  Sender: FDA-Public Use
  Company Number: US-AMGEN-KDL191886

PATIENT
  Sex: Male

DRUGS (4)
  1. PROCRIT [Suspect]
     Indication: ANAEMIA
     Route: 058
     Dates: start: 20060701
  2. LORAZEPAM [Concomitant]
  3. LEXAPRO [Concomitant]
     Dates: start: 20060201
  4. UNSPECIFIED HERBAL PRODUCT [Concomitant]

REACTIONS (2)
  - BLOOD PRESSURE INCREASED [None]
  - NIGHT SWEATS [None]
